FAERS Safety Report 9542032 (Version 1)
Quarter: 2013Q2

REPORT INFORMATION
  Report Type: Spontaneous
  Country: US (occurrence: None)
  Receive Date: 20130524
  Receipt Date: 20130524
  Transmission Date: 20140414
  Serious: No
  Sender: FDA-Public Use
  Company Number: PHEH2012US022631

PATIENT
  Sex: Male
  Weight: 90.7 kg

DRUGS (16)
  1. GILENYA [Suspect]
     Route: 048
  2. XANAX (ALPRAZOLAM) [Concomitant]
  3. AMBEIN (ZLOPIDEM TARTRATE0 [Concomitant]
  4. VICODOIN (HYDROCODONE BITARTRATE, PARACETAMOL0 [Concomitant]
  5. DEPAKOTE (VALPROATE SEMI SODIUM, PARACETAMOL) [Concomitant]
  6. NORFLEX (ORPHENADRINE CITRATE) [Concomitant]
  7. GABAPENTIN (GABAPENTIN) [Concomitant]
  8. VALIUM (DIAZEPAM) [Concomitant]
  9. BACLOFEN (BACLOFEN) [Concomitant]
  10. PRILOSEC [Concomitant]
  11. PROZAC (FLUOXETINE HYDROCHLORIDE) [Concomitant]
  12. VITAMIN B COMPLEX (VITAMIN B COMPLEX) [Concomitant]
  13. VITAMIN D (EROGCALCIFEROL) [Concomitant]
  14. MULTIVIT (MULTIVITAMINS NOS) [Concomitant]
  15. MOTRIN IBN (IBUPROFEN) [Concomitant]
  16. NOROCO (HYDROCODONE BITARTRATE, PARAETAMOL) [Concomitant]

REACTIONS (4)
  - Memory impairment [None]
  - Muscle spasticity [None]
  - Hypoaesthesia [None]
  - Paraesthesia [None]
